FAERS Safety Report 7591856 (Version 2)
Quarter: 2012Q4

REPORT INFORMATION
  Report Type: 
  Country: US (occurrence: US)
  Receive Date: 20100917
  Receipt Date: 20120906
  Transmission Date: 20130627
  Serious: No
  Sender: FDA-Public Use
  Company Number: US-ASTRAZENECA-2010SE22017

PATIENT
  Age: 54 Year
  Sex: Male
  Weight: 76.2 kg

DRUGS (10)
  1. SEROQUEL [Suspect]
     Indication: SCHIZOPHRENIA, PARANOID TYPE
     Route: 048
  2. SEROQUEL [Suspect]
     Indication: TENSION
     Route: 048
  3. SEROQUEL [Suspect]
     Indication: BIPOLAR DISORDER
     Route: 048
  4. SEROQUEL [Suspect]
     Indication: SCHIZOPHRENIA, PARANOID TYPE
     Route: 048
     Dates: start: 2004, end: 201208
  5. SEROQUEL [Suspect]
     Indication: TENSION
     Route: 048
     Dates: start: 2004, end: 201208
  6. SEROQUEL [Suspect]
     Indication: BIPOLAR DISORDER
     Route: 048
     Dates: start: 2004, end: 201208
  7. PAXIL [Concomitant]
     Dosage: ONCE
     Route: 048
     Dates: start: 2004
  8. KLONOPIN [Concomitant]
     Indication: PSYCHOMOTOR HYPERACTIVITY
     Route: 048
     Dates: start: 2004
  9. AMBIEN [Concomitant]
     Indication: INSOMNIA
     Dosage: HS
     Route: 048
     Dates: start: 2004
  10. OTHER MED [Concomitant]

REACTIONS (9)
  - Speech disorder [Unknown]
  - Speech disorder [Unknown]
  - Malaise [Unknown]
  - Insomnia [Unknown]
  - Ulcer [Unknown]
  - Psychomotor hyperactivity [Unknown]
  - Off label use [Unknown]
  - Intentional drug misuse [Unknown]
  - Drug effect decreased [Unknown]
